FAERS Safety Report 9215611 (Version 1)
Quarter: 2013Q2

REPORT INFORMATION
  Report Type: Spontaneous
  Country: BR (occurrence: BR)
  Receive Date: 20130408
  Receipt Date: 20130408
  Transmission Date: 20140414
  Serious: Yes (Other)
  Sender: FDA-Public Use
  Company Number: BR-AMGEN-BRASP2013023469

PATIENT
  Age: 34 Year
  Sex: Male
  Weight: 73 kg

DRUGS (9)
  1. ENBREL [Suspect]
     Indication: RHEUMATOID ARTHRITIS
     Dosage: 50 MG, ONCE WEEKLY
     Route: 058
     Dates: start: 20121030
  2. PREDNISONE [Concomitant]
     Dosage: 5 MG, UNK
  3. IBUPROFEN [Concomitant]
     Dosage: 600 MG, UNK
  4. METHOTREXATE [Concomitant]
     Dosage: 2.5 MG, UNK
  5. FOLIC ACID [Concomitant]
     Dosage: 5 MG, UNK
  6. OMEPRAZOLE [Concomitant]
     Dosage: 20 MG, UNK
  7. CALCIUM [Concomitant]
     Dosage: ^600 E^
  8. ENALAPRIL [Concomitant]
     Dosage: 10 MG, UNK
  9. HYDROCHLOROTHIAZIDE [Concomitant]
     Dosage: 25 MG, UNK

REACTIONS (2)
  - Haemorrhoids [Unknown]
  - Joint swelling [Unknown]
